FAERS Safety Report 12399163 (Version 3)
Quarter: 2016Q3

REPORT INFORMATION
  Report Type: Spontaneous
  Country: DK (occurrence: DK)
  Receive Date: 20160524
  Receipt Date: 20160805
  Transmission Date: 20161109
  Serious: Yes (Death, Hospitalization)
  Sender: FDA-Public Use
  Company Number: DK-PFIZER INC-3274859

PATIENT
  Age: 61 Year
  Sex: Female

DRUGS (10)
  1. CIPROFLOXACIN FRESENIUS KABI /00697203/ [Suspect]
     Active Substance: CIPROFLOXACIN
     Indication: UROSEPSIS
     Dosage: 400 MG, 2X/DAY
     Route: 042
     Dates: start: 20160318, end: 20160401
  2. MEROPENEM. [Suspect]
     Active Substance: MEROPENEM
     Indication: UROSEPSIS
     Dosage: 1 G, DAILY
     Route: 042
     Dates: start: 20160320, end: 20160329
  3. FLUCONAZOL HEXAL [Suspect]
     Active Substance: FLUCONAZOLE
     Indication: FUNGAL INFECTION
     Dosage: 100 MG, 1X/DAY
     Route: 048
     Dates: start: 20160329, end: 20160401
  4. B-COMBIN [Concomitant]
     Dosage: UNK
     Dates: end: 20160419
  5. KALEORID [Concomitant]
     Active Substance: POTASSIUM CHLORIDE
     Dosage: UNK
     Dates: end: 20160331
  6. PANTOPRAZOLE SODIUM. [Concomitant]
     Active Substance: PANTOPRAZOLE SODIUM
     Dosage: UNK
     Dates: start: 20160310
  7. VANCOMYCINE FRESENIUS KABI [Suspect]
     Active Substance: VANCOMYCIN
     Indication: UROSEPSIS
     Dosage: 1 G, 2X/DAY
     Route: 042
     Dates: start: 20160326, end: 20160329
  8. ALDACTONE [Concomitant]
     Active Substance: SPIRONOLACTONE
     Dosage: UNK
     Dates: start: 20160324, end: 20160331
  9. FURIX [Concomitant]
     Active Substance: FUROSEMIDE
     Indication: DIURETIC THERAPY
     Dosage: UNK
     Dates: start: 20160201, end: 20160331
  10. THIAMIN [Concomitant]
     Active Substance: THIAMINE
     Dosage: UNK
     Dates: end: 20160419

REACTIONS (11)
  - Hypotension [Not Recovered/Not Resolved]
  - Dialysis [Not Recovered/Not Resolved]
  - Renal failure [Fatal]
  - Hepatic failure [Fatal]
  - Blister [Not Recovered/Not Resolved]
  - Acidosis [Not Recovered/Not Resolved]
  - Endotracheal intubation [Not Recovered/Not Resolved]
  - Cardiovascular insufficiency [Fatal]
  - Rash pruritic [Not Recovered/Not Resolved]
  - Fluid overload [Not Recovered/Not Resolved]
  - Toxic epidermal necrolysis [Fatal]

NARRATIVE: CASE EVENT DATE: 20160326
